FAERS Safety Report 17820721 (Version 2)
Quarter: 2020Q2

REPORT INFORMATION
  Report Type: Spontaneous
  Country: US (occurrence: US)
  Receive Date: 20200525
  Receipt Date: 20200618
  Transmission Date: 20200714
  Serious: No
  Sender: FDA-Public Use
  Company Number: US-ASTRAZENECA-2020SE62099

PATIENT
  Age: 27449 Day
  Sex: Male
  Weight: 82.1 kg

DRUGS (3)
  1. BYDUREON BCISE [Suspect]
     Active Substance: EXENATIDE
     Indication: DIABETES MELLITUS INADEQUATE CONTROL
     Dosage: ONCE A WEEK
     Route: 065
  2. LANCER INSULIN [Concomitant]
     Indication: BLOOD INSULIN ABNORMAL
     Dosage: QD
     Route: 065
  3. BYDUREON BCISE [Suspect]
     Active Substance: EXENATIDE
     Indication: DIABETES MELLITUS INADEQUATE CONTROL
     Route: 065
     Dates: start: 202005

REACTIONS (4)
  - Device issue [Unknown]
  - Product dose omission [Unknown]
  - Wrong technique in device usage process [Unknown]
  - Injection site indentation [Unknown]

NARRATIVE: CASE EVENT DATE: 20200508
